FAERS Safety Report 18337036 (Version 1)
Quarter: 2020Q4

REPORT INFORMATION
  Report Type: Other
  Country: PL (occurrence: PL)
  Receive Date: 20201002
  Receipt Date: 20201002
  Transmission Date: 20210113
  Serious: Yes (Other)
  Sender: FDA-Public Use
  Company Number: PL-GLENMARK PHARMACEUTICALS-2020GMK049810

PATIENT

DRUGS (3)
  1. LIRRA, 5 MG, TABLETKI POWLEKANE [Suspect]
     Active Substance: LEVOCETIRIZINE DIHYDROCHLORIDE
     Indication: RHINITIS
  2. LIRRA, 5 MG, TABLETKI POWLEKANE [Suspect]
     Active Substance: LEVOCETIRIZINE DIHYDROCHLORIDE
     Indication: TONSILLAR HYPERTROPHY
     Dosage: 5 MILLIGRAM
     Route: 048
     Dates: start: 20180528, end: 20180529
  3. DALACIN C [CLINDAMYCIN HYDROCHLORIDE] [Concomitant]
     Active Substance: CLINDAMYCIN HYDROCHLORIDE
     Indication: PRODUCT USED FOR UNKNOWN INDICATION
     Dosage: UNK
     Route: 065

REACTIONS (6)
  - Hyperhidrosis [Unknown]
  - Dementia [Unknown]
  - Disturbance in attention [Unknown]
  - Asthenia [Unknown]
  - Dry mouth [Unknown]
  - Mood altered [Unknown]

NARRATIVE: CASE EVENT DATE: 20180528
